FAERS Safety Report 5779772-X (Version None)
Quarter: 2008Q2

REPORT INFORMATION
  Report Type: 
  Country: None (occurrence: None)
  Receive Date: 20080618
  Receipt Date: 20080605
  Transmission Date: 20081010
  Serious: Yes (Death)
  Sender: FDA-Public Use
  Company Number: 001018

PATIENT
  Age: 69 Year
  Sex: Male
  Weight: 53 kg

DRUGS (13)
  1. PLETAL [Suspect]
     Indication: ARTERIOSCLEROSIS OBLITERANS
     Dosage: 100 MG, BID ORAL
     Route: 048
     Dates: start: 20080412, end: 20080503
  2. ASPIRIN [Suspect]
     Indication: MYOCARDIAL INFARCTION
     Dosage: 100 MG, QD ORAL
     Route: 048
     Dates: start: 20050929, end: 20080503
  3. LOXONIN (LOXOPROFEN SODIUM) [Suspect]
     Indication: BACK PAIN
     Dosage: 60 MG, TID; ORAL
     Route: 048
     Dates: start: 20080325, end: 20080503
  4. HEPARIN [Concomitant]
  5. ERYTHROPOIETIN (ERYTHROPOIETIN) [Concomitant]
  6. LASIX [Concomitant]
  7. SIGMART (NICORANDIL) [Concomitant]
  8. BASEN (VOGLIBOSE) [Concomitant]
  9. NOVOLIN N (INSULIN HUMAN (GENETICAL RECOMBINATION)) [Concomitant]
  10. LENDORM [Concomitant]
  11. VENCOLL (CASANTHRANOL, DOCUSATE SODIUM) [Concomitant]
  12. RENAGEL [Concomitant]
  13. MUCOSTA (REBAMIPIDE) [Concomitant]

REACTIONS (5)
  - ARTERIAL STENOSIS [None]
  - GASTROINTESTINAL HAEMORRHAGE [None]
  - HYPOTENSION [None]
  - SKIN ULCER [None]
  - VOMITING [None]
